FAERS Safety Report 4596325-X (Version None)
Quarter: 2005Q1

REPORT INFORMATION
  Report Type: 
  Country: None (occurrence: None)
  Receive Date: 20050225
  Receipt Date: 20050216
  Transmission Date: 20050727
  Serious: Yes (Other)
  Sender: FDA-Public Use
  Company Number: 2005-02-0921

PATIENT
  Age: 68 Year
  Sex: Female

DRUGS (7)
  1. VIRAFERONPEG [Suspect]
     Indication: HEPATITIS C
     Dosage: 80-90UG* SUBCUTANEOUS
     Route: 058
     Dates: start: 20040607, end: 20040801
  2. VIRAFERONPEG [Suspect]
     Indication: HEPATITIS C
     Dosage: 80-90UG* SUBCUTANEOUS
     Route: 058
     Dates: start: 20040801
  3. VIRAFERONPEG [Suspect]
  4. REBETOL [Suspect]
     Indication: HEPATITIS C
     Dosage: 400 MG QD ORAL
     Route: 048
     Dates: start: 20040607
  5. REBETOL [Suspect]
  6. PAXIL [Concomitant]
  7. XANAX [Concomitant]

REACTIONS (3)
  - BLOOD CREATINE PHOSPHOKINASE INCREASED [None]
  - FATIGUE [None]
  - MYOPATHY [None]
